FAERS Safety Report 9697278 (Version 1)
Quarter: 2013Q4

REPORT INFORMATION
  Report Type: Spontaneous
  Country: FR (occurrence: FR)
  Receive Date: 20131120
  Receipt Date: 20131120
  Transmission Date: 20140711
  Serious: Yes (Hospitalization)
  Sender: FDA-Public Use
  Company Number: FR-ASTRAZENECA-2013SE84009

PATIENT
  Age: 27338 Day
  Sex: Female

DRUGS (13)
  1. INEXIUM [Suspect]
     Route: 048
     Dates: end: 20121127
  2. TAHOR [Suspect]
     Route: 048
     Dates: end: 20121127
  3. ALDACTONE [Suspect]
     Route: 048
     Dates: start: 20121108, end: 20121127
  4. ATARAX [Concomitant]
  5. CARDENSIEL [Concomitant]
     Dates: start: 20121114
  6. DIFFU-K [Concomitant]
  7. KARDEGIC [Concomitant]
  8. LASILIX [Concomitant]
  9. PLAVIX [Concomitant]
  10. RAMIPRIL [Concomitant]
     Dates: start: 20121120
  11. ARIXTRA [Concomitant]
     Route: 058
  12. DEXERYL [Concomitant]
  13. TERBUTALIN+IPRATROPIUM [Concomitant]
     Route: 055

REACTIONS (4)
  - Blister [Recovered/Resolved]
  - Eosinophilia [Recovering/Resolving]
  - Toxic skin eruption [Unknown]
  - Rash maculo-papular [Recovered/Resolved]
